FAERS Safety Report 9877309 (Version 1)
Quarter: 2014Q1

REPORT INFORMATION
  Report Type: Spontaneous
  Country: US (occurrence: US)
  Receive Date: 20140206
  Receipt Date: 20140206
  Transmission Date: 20141002
  Serious: No
  Sender: FDA-Public Use
  Company Number: US-BAYER-2014-018784

PATIENT
  Age: 50 Year
  Sex: Female
  Weight: 93.88 kg

DRUGS (2)
  1. ALEVE GELCAPS [Suspect]
     Indication: BACK PAIN
     Dosage: 1 DF, EVERY 9 HOURS
     Route: 048
     Dates: start: 20140130
  2. TYLENOL [PARACETAMOL] [Concomitant]
     Dosage: UNK

REACTIONS (1)
  - Drug ineffective [None]
